FAERS Safety Report 13659073 (Version 2)
Quarter: 2017Q3

REPORT INFORMATION
  Report Type: Spontaneous
  Country: US (occurrence: US)
  Receive Date: 20170616
  Receipt Date: 20170822
  Transmission Date: 20171127
  Serious: No
  Sender: FDA-Public Use
  Company Number: US-PFIZER INC-2017258654

PATIENT
  Age: 41 Year
  Sex: Female

DRUGS (2)
  1. IBRANCE [Suspect]
     Active Substance: PALBOCICLIB
     Indication: NEOPLASM MALIGNANT
     Dosage: 125 MG, CYCLIC (TAKE 1(125 MG TOTAL) BY MOUTH DAILY EVERY 28 DAYS)
     Route: 048
     Dates: start: 201705
  2. IBRANCE [Suspect]
     Active Substance: PALBOCICLIB
     Dosage: 125 MG, CYCLIC (TAKE 1 (125 MG TOTAL) BY MOUTH DAILY EVERY 28 DAYS)
     Route: 048
     Dates: start: 201705

REACTIONS (7)
  - Vomiting [Unknown]
  - Dyspepsia [Unknown]
  - Neoplasm progression [Unknown]
  - Eye pain [Unknown]
  - Headache [Unknown]
  - Diarrhoea [Unknown]
  - Mouth ulceration [Unknown]
